FAERS Safety Report 5403868-5 (Version None)
Quarter: 2007Q3

REPORT INFORMATION
  Report Type: 
  Country: None (occurrence: None)
  Receive Date: 20070712
  Receipt Date: 20060912
  Transmission Date: 20080115
  Serious: Yes (Other)
  Sender: FDA-Public Use
  Company Number: 2006091265

PATIENT
  Sex: Female

DRUGS (2)
  1. ACCUPRIL [Suspect]
  2. MICARDIS [Concomitant]

REACTIONS (3)
  - ANGIOEDEMA [None]
  - CARDIAC DISORDER [None]
  - COUGH [None]
